FAERS Safety Report 13860291 (Version 1)
Quarter: 2017Q3

REPORT INFORMATION
  Report Type: Spontaneous
  Country: TR (occurrence: TR)
  Receive Date: 20170811
  Receipt Date: 20170811
  Transmission Date: 20171127
  Serious: Yes (Other)
  Sender: FDA-Public Use
  Company Number: TR-TEVA-794468ROM

PATIENT
  Age: 11 Year
  Sex: Male

DRUGS (1)
  1. RISPERIDONE. [Suspect]
     Active Substance: RISPERIDONE
     Indication: AUTISM SPECTRUM DISORDER
     Dosage: 1 MILLIGRAM DAILY;
     Route: 065

REACTIONS (2)
  - Hyperacusis [Recovered/Resolved]
  - Condition aggravated [Recovered/Resolved]
